FAERS Safety Report 22080756 (Version 2)
Quarter: 2023Q1

REPORT INFORMATION
  Report Type: Spontaneous
  Country: US (occurrence: US)
  Receive Date: 20230309
  Receipt Date: 20230323
  Transmission Date: 20230417
  Serious: Yes (Other)
  Sender: FDA-Public Use
  Company Number: US-TEVA-2023-US-2862376

PATIENT
  Age: 58 Year
  Sex: Male

DRUGS (2)
  1. CLOBETASOL [Suspect]
     Active Substance: CLOBETASOL
     Indication: Alopecia areata
     Dosage: IN THE MORNING
     Route: 061
  2. MINOXIDIL [Suspect]
     Active Substance: MINOXIDIL
     Indication: Alopecia areata
     Dosage: FOR ONE MONTH AS MONOTHERAPY AND ADDITIONAL ONE MONTH WITH CLOBETASOL (IN THE EVENING)
     Route: 061

REACTIONS (2)
  - Dermatitis [Recovered/Resolved]
  - Drug ineffective for unapproved indication [Unknown]
